FAERS Safety Report 20527635 (Version 1)
Quarter: 2022Q1

REPORT INFORMATION
  Report Type: Spontaneous
  Country: US (occurrence: None)
  Receive Date: 20220228
  Receipt Date: 20220228
  Transmission Date: 20220423
  Serious: Yes (Other)
  Sender: FDA-Public Use
  Company Number: None

PATIENT
  Age: 64 Year
  Sex: Female
  Weight: 81 kg

DRUGS (10)
  1. EMGALITY [Suspect]
     Active Substance: GALCANEZUMAB-GNLM
     Indication: Migraine
     Dosage: OTHER FREQUENCY : ONCE A MONTH;?
     Route: 058
     Dates: start: 20211111, end: 20220125
  2. TEGRETOL [Concomitant]
     Active Substance: CARBAMAZEPINE
     Dates: start: 20120201
  3. CLARITIN [Concomitant]
     Active Substance: LORATADINE
     Dates: start: 20120201
  4. DEPAKOTE [Concomitant]
     Active Substance: DIVALPROEX SODIUM
     Dates: start: 20120201
  5. PROZAC [Concomitant]
     Active Substance: FLUOXETINE HYDROCHLORIDE
     Dates: start: 20120201
  6. SYNTHROID [Concomitant]
     Active Substance: LEVOTHYROXINE SODIUM
     Dates: start: 20120201
  7. ATORVASTATIN [Concomitant]
     Active Substance: ATORVASTATIN
     Dates: start: 20120201
  8. RITALIN [Concomitant]
     Active Substance: METHYLPHENIDATE HYDROCHLORIDE
     Dates: start: 20120201
  9. MELATONIN [Concomitant]
     Active Substance: MELATONIN
     Dates: start: 20120201
  10. AMBIEN [Concomitant]
     Active Substance: ZOLPIDEM TARTRATE
     Dates: start: 20120201

REACTIONS (5)
  - Injection site rash [None]
  - Urticaria [None]
  - Anaphylactic reaction [None]
  - Dyspnoea [None]
  - Swelling [None]

NARRATIVE: CASE EVENT DATE: 20220125
